FAERS Safety Report 8477701-1 (Version None)
Quarter: 2012Q2

REPORT INFORMATION
  Report Type: 
  Country: None (occurrence: None)
  Receive Date: 20120626
  Receipt Date: 20120626
  Transmission Date: 20120825
  Serious: Yes (Hospitalization)
  Sender: FDA-Public Use
  Company Number: None

PATIENT
  Age: 51 Year
  Sex: Female
  Weight: 101.1 kg

DRUGS (1)
  1. BUPROPION HCL [Suspect]
     Indication: ANXIETY
     Dosage: 100 MG BID PO
     Route: 048
     Dates: start: 20111021, end: 20111028

REACTIONS (15)
  - NAUSEA [None]
  - LYMPHADENOPATHY [None]
  - HEADACHE [None]
  - BLOOD GLUCOSE DECREASED [None]
  - DIZZINESS [None]
  - VOMITING [None]
  - FEELING ABNORMAL [None]
  - EAR PAIN [None]
  - DYSPNOEA [None]
  - HYPERHIDROSIS [None]
  - CONFUSIONAL STATE [None]
  - CHEST PAIN [None]
  - PAIN IN JAW [None]
  - SINUS HEADACHE [None]
  - DELIRIUM [None]
